FAERS Safety Report 24248349 (Version 1)
Quarter: 2024Q3

REPORT INFORMATION
  Report Type: Spontaneous
  Country: FR (occurrence: FR)
  Receive Date: 20240826
  Receipt Date: 20240826
  Transmission Date: 20241016
  Serious: Yes (Hospitalization, Other)
  Sender: HIKMA
  Company Number: None

PATIENT

DRUGS (2)
  1. ACYCLOVIR [Suspect]
     Active Substance: ACYCLOVIR
     Indication: Vestibular neuronitis
     Dosage: 750 MILLIGRAM, Q8H
     Route: 042
     Dates: start: 20240715, end: 20240716
  2. VALACYCLOVIR HYDROCHLORIDE [Suspect]
     Active Substance: VALACYCLOVIR HYDROCHLORIDE
     Indication: Vestibular neuronitis
     Dosage: 3000 MILLIGRAM, QD
     Route: 048
     Dates: start: 20240716, end: 20240717

REACTIONS (2)
  - Hepatic cytolysis [Recovering/Resolving]
  - Acute kidney injury [Recovered/Resolved]

NARRATIVE: CASE EVENT DATE: 20240717
